FAERS Safety Report 14931750 (Version 1)
Quarter: 2018Q2

REPORT INFORMATION
  Report Type: Report from Study
  Country: US (occurrence: US)
  Receive Date: 20180524
  Receipt Date: 20180524
  Transmission Date: 20180711
  Serious: No
  Sender: FDA-Public Use
  Company Number: US-ACADIA PHARMACEUTICALS INC.-ACA-2018-008187

PATIENT
  Sex: Male
  Weight: 100 kg

DRUGS (5)
  1. NUPLAZID [Suspect]
     Active Substance: PIMAVANSERIN TARTRATE
     Indication: HALLUCINATION
  2. NUPLAZID [Suspect]
     Active Substance: PIMAVANSERIN TARTRATE
     Indication: PARKINSON^S DISEASE
     Dosage: 34 MG, QD
     Route: 048
     Dates: start: 20180315
  3. CARBIDOPA/LEVODOPA [Concomitant]
     Active Substance: CARBIDOPA\LEVODOPA
     Indication: PARKINSON^S DISEASE
  4. MIRAPEX [Concomitant]
     Active Substance: PRAMIPEXOLE DIHYDROCHLORIDE
     Indication: PARKINSON^S DISEASE
     Dosage: 0.75 MG, 0.75 MG IN THE MORNING, AND THEN TAKES 0.5 MG AT 2 DIFFERENT TIMES
  5. MIRAPEX [Concomitant]
     Active Substance: PRAMIPEXOLE DIHYDROCHLORIDE
     Indication: FREEZING PHENOMENON

REACTIONS (7)
  - Drug dose omission [Unknown]
  - Constipation [Recovered/Resolved]
  - Gait disturbance [Not Recovered/Not Resolved]
  - Poor quality sleep [Recovered/Resolved]
  - Hallucination [Unknown]
  - Peripheral swelling [Recovered/Resolved]
  - Tremor [Not Recovered/Not Resolved]
